FAERS Safety Report 9696189 (Version 4)
Quarter: 2013Q4

REPORT INFORMATION
  Report Type: Report from Study
  Country: DE (occurrence: DE)
  Receive Date: 20131119
  Receipt Date: 20131219
  Transmission Date: 20140711
  Serious: Yes (Hospitalization)
  Sender: FDA-Public Use
  Company Number: PHHO2013DE011662

PATIENT
  Sex: 0

DRUGS (2)
  1. FTY [Suspect]
     Indication: RELAPSING-REMITTING MULTIPLE SCLEROSIS
     Dosage: 0.5 MG, UNK
     Route: 048
     Dates: start: 20130906, end: 20130906
  2. PREDNISOLONE SANDOZ [Suspect]
     Indication: OPTIC NEURITIS
     Dosage: 1000 MG, QD
     Dates: start: 20130822

REACTIONS (1)
  - Hypertensive crisis [Recovered/Resolved]
